FAERS Safety Report 8508605 (Version 3)
Quarter: 2013Q1

REPORT INFORMATION
  Report Type: Spontaneous
  Country: US (occurrence: US)
  Receive Date: 20120412
  Receipt Date: 20130327
  Transmission Date: 20140127
  Serious: Yes (Other)
  Sender: FDA-Public Use
  Company Number: US-ASTRAZENECA-2011SE65993

PATIENT
  Age: 59 Year
  Sex: Female

DRUGS (2)
  1. NEXIUM [Suspect]
     Route: 048
  2. PEPCID AC [Concomitant]

REACTIONS (13)
  - Foot fracture [Unknown]
  - Aphagia [Unknown]
  - Regurgitation [Unknown]
  - Dyspepsia [Unknown]
  - Dyspepsia [Unknown]
  - Eructation [Unknown]
  - Constipation [Unknown]
  - Malaise [Unknown]
  - Flatulence [Unknown]
  - Nausea [Unknown]
  - Insomnia [Unknown]
  - Abdominal pain upper [Unknown]
  - Drug dose omission [Unknown]
